FAERS Safety Report 23785415 (Version 2)
Quarter: 2024Q3

REPORT INFORMATION
  Report Type: Report from Study
  Country: GB (occurrence: GB)
  Receive Date: 20240425
  Receipt Date: 20240702
  Transmission Date: 20241017
  Serious: Yes (Other)
  Sender: EISAI
  Company Number: GB-Eisai-EC-2024-164130

PATIENT
  Sex: Male

DRUGS (9)
  1. LENVATINIB [Suspect]
     Active Substance: LENVATINIB
     Indication: Ewing^s sarcoma
     Route: 048
     Dates: start: 20231212
  2. IFOSFAMIDE [Suspect]
     Active Substance: IFOSFAMIDE
     Indication: Ewing^s sarcoma
     Route: 042
     Dates: start: 20231212, end: 20240406
  3. METHYLENE BLUE [Concomitant]
     Active Substance: METHYLENE BLUE
     Indication: Drug toxicity prophylaxis
     Route: 042
     Dates: start: 20231216
  4. APREPITANT [Concomitant]
     Active Substance: APREPITANT
     Indication: Antiemetic supportive care
     Route: 048
     Dates: start: 20231202
  5. CLOTRIMAZOLE [Concomitant]
     Active Substance: CLOTRIMAZOLE
     Indication: Prophylaxis
     Route: 048
     Dates: start: 20231216
  6. ONDANSETRON [Concomitant]
     Active Substance: ONDANSETRON
     Indication: Antiemetic supportive care
     Route: 042
     Dates: start: 20231127, end: 20240307
  7. METOCLOPRAMIDE [Concomitant]
     Active Substance: METOCLOPRAMIDE
     Indication: Antiemetic supportive care
     Route: 042
     Dates: start: 20231212, end: 20240307
  8. GABAPENTIN [Concomitant]
     Active Substance: GABAPENTIN
     Indication: Drug abuse
     Route: 048
     Dates: start: 20231127, end: 20240307
  9. LEVOMAPROMAZINE [Concomitant]
     Indication: Antiemetic supportive care
     Dates: start: 20231214, end: 20240401

REACTIONS (1)
  - Hypothyroidism [Recovered/Resolved]

NARRATIVE: CASE EVENT DATE: 20240210
